FAERS Safety Report 8357351-8 (Version None)
Quarter: 2012Q2

REPORT INFORMATION
  Report Type: 
  Country: None (occurrence: None)
  Receive Date: 20120514
  Receipt Date: 20120503
  Transmission Date: 20120825
  Serious: Yes (Other)
  Sender: FDA-Public Use
  Company Number: US-JNJFOC-20120412643

PATIENT

DRUGS (2)
  1. RITALIN [Suspect]
     Indication: POSTURAL ORTHOSTATIC TACHYCARDIA SYNDROME
     Dosage: 15- 30 MINS BEFORE MEALS
     Route: 048
  2. METHYLPHENIDATE HCL [Suspect]
     Indication: POSTURAL ORTHOSTATIC TACHYCARDIA SYNDROME
     Dosage: 15- 30 MINS BEFORE MEALS
     Route: 048

REACTIONS (3)
  - SYNCOPE [None]
  - NAUSEA [None]
  - ORTHOSTATIC INTOLERANCE [None]
